FAERS Safety Report 10147321 (Version 1)
Quarter: 2014Q2

REPORT INFORMATION
  Report Type: Spontaneous
  Country: US (occurrence: US)
  Receive Date: 20140501
  Receipt Date: 20140501
  Transmission Date: 20141212
  Serious: No
  Sender: FDA-Public Use
  Company Number: US-SA-2014SA011782

PATIENT
  Age: 50 Year
  Sex: Male
  Weight: 138 kg

DRUGS (3)
  1. HECTOROL [Suspect]
     Indication: PRODUCT USED FOR UNKNOWN INDICATION
     Route: 042
     Dates: start: 20131220, end: 20131220
  2. HECTOROL [Suspect]
     Indication: PRODUCT USED FOR UNKNOWN INDICATION
     Route: 042
     Dates: start: 20131220, end: 20131220
  3. VENOFER [Concomitant]
     Indication: IRON DEFICIENCY ANAEMIA
     Dosage: DURING DIALYSIS
     Route: 042
     Dates: start: 20131220

REACTIONS (2)
  - Tachycardia [Recovered/Resolved]
  - Pruritus [Recovered/Resolved]
